FAERS Safety Report 8553695-5 (Version None)
Quarter: 2012Q3

REPORT INFORMATION
  Report Type: 
  Country: None (occurrence: None)
  Receive Date: 20120725
  Receipt Date: 20120725
  Transmission Date: 20120928
  Serious: Yes (Other)
  Sender: FDA-Public Use
  Company Number: None

PATIENT
  Age: 63 Year
  Sex: Female
  Weight: 58.9676 kg

DRUGS (2)
  1. HALDOL DECOANATE 50MG [Suspect]
     Indication: SCHIZOPHRENIA
     Dates: start: 20100615, end: 20111115
  2. HALDOL [Suspect]
     Indication: AGITATION
     Dates: start: 20120622, end: 20120622

REACTIONS (3)
  - SCHIZOAFFECTIVE DISORDER [None]
  - TREMOR [None]
  - DEMENTIA [None]
